FAERS Safety Report 7940082-3 (Version None)
Quarter: 2011Q4

REPORT INFORMATION
  Report Type: 
  Country: None (occurrence: None)
  Receive Date: 20111125
  Receipt Date: 20111116
  Transmission Date: 20120403
  Serious: Yes (Hospitalization)
  Sender: FDA-Public Use
  Company Number: PHHY2011EC101079

PATIENT
  Sex: Male

DRUGS (1)
  1. DIOVAN HCT [Suspect]
     Indication: HYPERTENSION
     Dosage: 1 DF, (160/25 MG)
     Route: 048
     Dates: start: 20110623

REACTIONS (3)
  - PYREXIA [None]
  - ORCHITIS NONINFECTIVE [None]
  - TESTICULAR PAIN [None]
